FAERS Safety Report 12325379 (Version 1)
Quarter: 2016Q2

REPORT INFORMATION
  Report Type: Report from Study
  Country: DE (occurrence: DE)
  Receive Date: 20160502
  Receipt Date: 20160502
  Transmission Date: 20160815
  Serious: Yes (Hospitalization, Other)
  Sender: FDA-Public Use
  Company Number: DE-ASTRAZENECA-2015SE59734

PATIENT
  Age: 60 Year
  Sex: Male

DRUGS (22)
  1. LAKTASE [Concomitant]
     Indication: LACTOSE TOLERANCE TEST
     Dosage: AS REQUIRED
     Route: 048
  2. PREDNISOLON [Concomitant]
     Active Substance: PREDNISOLONE
     Indication: CHRONIC OBSTRUCTIVE PULMONARY DISEASE
     Route: 048
     Dates: start: 20150106, end: 20150113
  3. MEDI-563 [Suspect]
     Active Substance: BENRALIZUMAB
     Indication: CHRONIC OBSTRUCTIVE PULMONARY DISEASE
     Dosage: 30 MG EVERY 4 WEEKS FOR THE FIRST 3 DOSES AND THEN EVERY 8 WEEKS THEREAFTER
     Route: 058
     Dates: start: 20141021
  4. SALBUTAMOL [Concomitant]
     Active Substance: ALBUTEROL
     Indication: CHRONIC OBSTRUCTIVE PULMONARY DISEASE
     Route: 055
  5. NITRO LINGUAL [Concomitant]
     Indication: CORONARY ARTERY DISEASE
     Route: 060
  6. MEDI-563 [Suspect]
     Active Substance: BENRALIZUMAB
     Indication: CHRONIC OBSTRUCTIVE PULMONARY DISEASE
     Dosage: 30 MG EVERY 4 WEEKS FOR THE FIRST 3 DOSES AND THEN EVERY 8 WEEKS THEREAFTER
     Route: 058
     Dates: start: 20141121
  7. FORMATRIS [Suspect]
     Active Substance: FORMOTEROL FUMARATE
     Indication: CHRONIC OBSTRUCTIVE PULMONARY DISEASE
     Route: 055
     Dates: start: 20150106
  8. AMPHO MORONAL [Concomitant]
     Active Substance: AMPHOTERICIN B
     Indication: SKIN DEPIGMENTATION
     Route: 048
     Dates: start: 20141028
  9. MEDI-563 [Suspect]
     Active Substance: BENRALIZUMAB
     Indication: CHRONIC OBSTRUCTIVE PULMONARY DISEASE
     Dosage: 30 MG EVERY 4 WEEKS FOR THE FIRST 3 DOSES AND THEN EVERY 8 WEEKS THEREAFTER
     Route: 058
     Dates: start: 20150312
  10. BUDECORT [Suspect]
     Active Substance: BUDESONIDE
     Indication: CHRONIC OBSTRUCTIVE PULMONARY DISEASE
     Route: 055
  11. SPIRIVA [Concomitant]
     Active Substance: TIOTROPIUM BROMIDE MONOHYDRATE
     Indication: CHRONIC OBSTRUCTIVE PULMONARY DISEASE
     Route: 055
  12. ASPIRIN. [Concomitant]
     Active Substance: ASPIRIN
     Indication: CORONARY ARTERY DISEASE
     Route: 048
  13. ACC AKUT [Concomitant]
     Active Substance: ACETYLCYSTEINE
     Indication: CHRONIC OBSTRUCTIVE PULMONARY DISEASE
     Route: 048
     Dates: start: 20141230
  14. MEDI-563 [Suspect]
     Active Substance: BENRALIZUMAB
     Indication: CHRONIC OBSTRUCTIVE PULMONARY DISEASE
     Dosage: 30 MG EVERY 4 WEEKS FOR THE FIRST 3 DOSES AND THEN EVERY 8 WEEKS THEREAFTER
     Route: 058
     Dates: start: 20150507
  15. SIMVASTATIN. [Concomitant]
     Active Substance: SIMVASTATIN
     Indication: HYPERLIPIDAEMIA
     Route: 048
  16. BISOPROLOL [Concomitant]
     Active Substance: BISOPROLOL
     Indication: CORONARY ARTERY DISEASE
     Route: 048
  17. RAMIPRIL. [Concomitant]
     Active Substance: RAMIPRIL
     Indication: HYPERTENSION
     Route: 048
  18. SEROQUEL [Concomitant]
     Active Substance: QUETIAPINE FUMARATE
     Indication: DEPRESSION
     Dosage: AS REQUIRED
     Route: 048
  19. ELONTRIL [Concomitant]
     Active Substance: BUPROPION HYDROCHLORIDE
     Indication: DEPRESSION
     Route: 048
     Dates: start: 20110618
  20. MEDI-563 [Suspect]
     Active Substance: BENRALIZUMAB
     Indication: CHRONIC OBSTRUCTIVE PULMONARY DISEASE
     Dosage: 30 MG EVERY 4 WEEKS FOR THE FIRST 3 DOSES AND THEN EVERY 8 WEEKS THEREAFTER
     Route: 058
     Dates: start: 20140926
  21. MEDI-563 [Suspect]
     Active Substance: BENRALIZUMAB
     Indication: CHRONIC OBSTRUCTIVE PULMONARY DISEASE
     Dosage: 30 MG EVERY 4 WEEKS FOR THE FIRST 3 DOSES AND THEN EVERY 8 WEEKS THEREAFTER
     Route: 058
     Dates: start: 20150115
  22. SYNTARIS [Concomitant]
     Indication: NASAL POLYPS
     Dosage: 500 UG/ML DAILY
     Route: 045

REACTIONS (1)
  - Chronic obstructive pulmonary disease [Recovered/Resolved]

NARRATIVE: CASE EVENT DATE: 20150613
